FAERS Safety Report 12754208 (Version 1)
Quarter: 2016Q3

REPORT INFORMATION
  Report Type: Spontaneous
  Country: DE (occurrence: DE)
  Receive Date: 20160915
  Receipt Date: 20160915
  Transmission Date: 20161109
  Serious: Yes (Other)
  Sender: FDA-Public Use
  Company Number: DE-GILEAD-2016-0233188

PATIENT
  Age: 73 Year
  Sex: Female

DRUGS (8)
  1. RANOLAZINE [Suspect]
     Active Substance: RANOLAZINE
     Indication: ANGINA PECTORIS
     Dosage: 1 DF, BID
     Route: 048
     Dates: start: 2015
  2. INSUMAN RAPID [Concomitant]
     Active Substance: INSULIN HUMAN
  3. RAMIPRIL. [Concomitant]
     Active Substance: RAMIPRIL
     Indication: BLOOD PRESSURE MEASUREMENT
  4. SIMVASTATIN. [Concomitant]
     Active Substance: SIMVASTATIN
  5. INSUMAN [Concomitant]
     Active Substance: INSULIN HUMAN
  6. METFORMIN [Concomitant]
     Active Substance: METFORMIN HYDROCHLORIDE
  7. ASPIRIN. [Concomitant]
     Active Substance: ASPIRIN
     Indication: CARDIAC DISORDER
  8. BISOPROLOL [Concomitant]
     Active Substance: BISOPROLOL

REACTIONS (5)
  - Wound [Unknown]
  - Respiratory distress [Unknown]
  - Freezing phenomenon [Unknown]
  - Hyperhidrosis [Unknown]
  - Fall [Unknown]

NARRATIVE: CASE EVENT DATE: 2015
